FAERS Safety Report 25751485 (Version 5)
Quarter: 2025Q4

REPORT INFORMATION
  Report Type: Spontaneous
  Country: CL (occurrence: CL)
  Receive Date: 20250902
  Receipt Date: 20251222
  Transmission Date: 20260118
  Serious: Yes (Life-Threatening, Hospitalization, Other)
  Sender: NOVO NORDISK
  Company Number: CL-NOVOPROD-1506924

PATIENT
  Age: 59 Year
  Sex: Male
  Weight: 106 kg

DRUGS (10)
  1. SAXENDA [Suspect]
     Active Substance: LIRAGLUTIDE
     Indication: Obesity
     Dosage: 0.6 MG, QD
     Route: 058
     Dates: start: 20250315, end: 20250324
  2. SAXENDA [Suspect]
     Active Substance: LIRAGLUTIDE
     Dosage: 1.8 MG, QD
  3. SAXENDA [Suspect]
     Active Substance: LIRAGLUTIDE
     Dosage: 1.2 MG, QD
     Route: 058
  4. SAXENDA [Suspect]
     Active Substance: LIRAGLUTIDE
     Dosage: 0.6 MG, QD
     Route: 058
     Dates: start: 20250816
  5. SAXENDA [Suspect]
     Active Substance: LIRAGLUTIDE
     Indication: Type 2 diabetes mellitus
     Dosage: USED SAXENDA FOR TWO WEEKS
     Route: 058
     Dates: start: 202504
  6. GLAUPAX 1000 XR [Concomitant]
     Indication: Type 2 diabetes mellitus
     Dosage: 1000 MG, BID
     Route: 048
     Dates: start: 202501
  7. ROSUVASTATIN [Concomitant]
     Active Substance: ROSUVASTATIN
     Dosage: 20 MG, QD
     Route: 048
     Dates: start: 202508
  8. CARVEDILOL [Concomitant]
     Active Substance: CARVEDILOL
     Dosage: 25 MG, QD
     Route: 048
     Dates: start: 2025
  9. OLTAN AMLO [Concomitant]
     Indication: Hypertension
     Dosage: 40 MG/5 MG QD
     Route: 048
     Dates: start: 202501
  10. KETOROLAC [Suspect]
     Active Substance: KETOROLAC TROMETHAMINE
     Indication: Product used for unknown indication
     Dosage: UNK

REACTIONS (7)
  - Non-Hodgkin^s lymphoma [Recovered/Resolved]
  - Gastric cancer [Recovered/Resolved]
  - Helicobacter infection [Recovered/Resolved]
  - Blood glucose increased [Unknown]
  - Injection site hypersensitivity [Recovered/Resolved]
  - Lack of injection site rotation [Unknown]
  - Wrong technique in product usage process [Unknown]

NARRATIVE: CASE EVENT DATE: 20250324
